FAERS Safety Report 19185146 (Version 1)
Quarter: 2021Q2

REPORT INFORMATION
  Report Type: Spontaneous
  Country: US (occurrence: US)
  Receive Date: 20210427
  Receipt Date: 20210427
  Transmission Date: 20210717
  Serious: Yes (Hospitalization, Other)
  Sender: FDA-Public Use
  Company Number: US-SA-2021SA133297

PATIENT
  Age: 35 Year
  Sex: Male

DRUGS (6)
  1. TOCILIZUMAB. [Suspect]
     Active Substance: TOCILIZUMAB
     Indication: COVID-19 PNEUMONIA
     Dosage: UNK
  2. CONVALESCENT PLASMA COVID?19 [Concomitant]
     Indication: COVID-19 PNEUMONIA
     Dosage: UNK
  3. VASOPRESSIN. [Concomitant]
     Active Substance: VASOPRESSIN
     Indication: RIGHT VENTRICULAR DYSFUNCTION
  4. NOREPINEPHRINE. [Concomitant]
     Active Substance: NOREPINEPHRINE
     Indication: RIGHT VENTRICULAR DYSFUNCTION
  5. HYDROCORTISONE SALT NOT SPECIFIED [Suspect]
     Active Substance: HYDROCORTISONE
     Indication: ACUTE RESPIRATORY FAILURE
     Dosage: UNK
  6. HYDROCORTISONE SALT NOT SPECIFIED [Suspect]
     Active Substance: HYDROCORTISONE
     Indication: COVID-19 PNEUMONIA

REACTIONS (9)
  - Gallbladder enlargement [Recovering/Resolving]
  - Jaundice [Recovering/Resolving]
  - Leukocytosis [Recovering/Resolving]
  - Biliary dilatation [Recovering/Resolving]
  - Liver disorder [Recovering/Resolving]
  - Cholecystitis infective [Recovering/Resolving]
  - Hyperbilirubinaemia [Not Recovered/Not Resolved]
  - Candida infection [Recovering/Resolving]
  - Fungaemia [Unknown]
